FAERS Safety Report 25515712 (Version 1)
Quarter: 2025Q3

REPORT INFORMATION
  Report Type: Spontaneous
  Country: US (occurrence: US)
  Receive Date: 20250704
  Receipt Date: 20250704
  Transmission Date: 20251020
  Serious: Yes (Other)
  Sender: MERCK SHARP & DOHME LLC
  Company Number: US-009507513-2300682

PATIENT
  Age: 77 Year
  Sex: Male
  Weight: 84.72 kg

DRUGS (11)
  1. PEMBROLIZUMAB [Suspect]
     Active Substance: PEMBROLIZUMAB
     Indication: Renal cell carcinoma
     Dates: end: 20250528
  2. CABOMETYX [Suspect]
     Active Substance: CABOZANTINIB S-MALATE
     Indication: Renal cell carcinoma
     Dosage: 40 MG, QD
     Route: 048
     Dates: start: 20250508, end: 20250528
  3. LEVOTHYROXINE [Concomitant]
     Active Substance: LEVOTHYROXINE
  4. TRAMADOL [Concomitant]
     Active Substance: TRAMADOL
  5. AZITHROMYCIN [Concomitant]
     Active Substance: AZITHROMYCIN
  6. CLOBETASOL [Concomitant]
     Active Substance: CLOBETASOL
  7. ONDANSETRON [Concomitant]
     Active Substance: ONDANSETRON
  8. OSELTAMIVIR [Concomitant]
     Active Substance: OSELTAMIVIR
  9. GUAIFENESIN [Concomitant]
     Active Substance: GUAIFENESIN
  10. PROMETHAZINE [Concomitant]
     Active Substance: PROMETHAZINE HYDROCHLORIDE
  11. DICLOFENAC [Concomitant]
     Active Substance: DICLOFENAC

REACTIONS (1)
  - Malignant neoplasm progression [Unknown]

NARRATIVE: CASE EVENT DATE: 20250528
